FAERS Safety Report 9206717 (Version 1)
Quarter: 2013Q1

REPORT INFORMATION
  Report Type: Spontaneous
  Country: US (occurrence: None)
  Receive Date: 20120709
  Receipt Date: 20120709
  Transmission Date: 20140127
  Serious: Yes (Other)
  Sender: FDA-Public Use
  Company Number: PHHY2011US46766

PATIENT
  Sex: Male
  Weight: 72.6 kg

DRUGS (9)
  1. GLEEVEC (IMATINIB) [Suspect]
     Route: 048
  2. CENTRUM (MINERALS NOS, VITAMINS NOS) TABLET [Concomitant]
  3. FOLIC ACID (FOLIC ACID) TABLET [Concomitant]
  4. LUTEIN (XANTOFYL) CAPSULE [Concomitant]
  5. FISH OIL (FISH OIL) CAPSULE [Concomitant]
  6. VITAMIN D (ERGOCALCIFEROL) CAPSULE [Concomitant]
  7. IRON (IRON) TABLET [Concomitant]
  8. MULTIVITAMIN (VITAMINS NOS) CAPSULE [Concomitant]
  9. GINKGO BILOBA (GINKGO BILOBA) TABLET [Concomitant]

REACTIONS (2)
  - Haemorrhage [None]
  - Fatigue [None]
